FAERS Safety Report 19248847 (Version 1)
Quarter: 2021Q2

REPORT INFORMATION
  Report Type: Spontaneous
  Country: US (occurrence: US)
  Receive Date: 20210512
  Receipt Date: 20210512
  Transmission Date: 20210717
  Serious: No
  Sender: FDA-Public Use
  Company Number: US-GILEAD-2021-0525635

PATIENT
  Age: 37 Year
  Sex: Female

DRUGS (3)
  1. ASPIRIN (E.C.) [Concomitant]
     Active Substance: ASPIRIN
  2. EPCLUSA [Suspect]
     Active Substance: SOFOSBUVIR\VELPATASVIR
     Indication: CHRONIC HEPATITIS C
     Dosage: 1 DOSAGE FORM, QD
     Route: 048
     Dates: start: 202103
  3. NICOTINE. [Concomitant]
     Active Substance: NICOTINE

REACTIONS (3)
  - Intentional dose omission [Recovered/Resolved]
  - Product dose omission issue [Recovered/Resolved]
  - Nausea [Unknown]

NARRATIVE: CASE EVENT DATE: 20210413
